FAERS Safety Report 6211885-0 (Version None)
Quarter: 2009Q2

REPORT INFORMATION
  Report Type: 
  Country: None (occurrence: None)
  Receive Date: 20090528
  Receipt Date: 20090514
  Transmission Date: 20091009
  Serious: Yes (Death, Other)
  Sender: FDA-Public Use
  Company Number: 273838

PATIENT
  Age: 43 Year
  Sex: Male

DRUGS (6)
  1. METHYLPREDNISOLONE [Suspect]
     Indication: ANAEMIA
     Dosage: 2 MG/KG
  2. METHYLPREDNISOLONE [Suspect]
     Indication: AUTOIMMUNE DISORDER
     Dosage: 2 MG/KG
  3. SAQUINAVIR [Concomitant]
  4. RITONAVIR [Concomitant]
  5. EMTRICITABINE W/TENOFOVIR [Concomitant]
  6. BLOOD TRANSFUSION, AUXILLARY PRODUCTS) [Concomitant]

REACTIONS (23)
  - ABDOMINAL PAIN [None]
  - AEROMONA INFECTION [None]
  - ASCITES [None]
  - BACTERIAL INFECTION [None]
  - BETA HAEMOLYTIC STREPTOCOCCAL INFECTION [None]
  - BLISTER [None]
  - BLOOD CULTURE POSITIVE [None]
  - DIABETES MELLITUS [None]
  - DIARRHOEA [None]
  - GENERAL PHYSICAL HEALTH DETERIORATION [None]
  - HAEMORRHAGE [None]
  - HYPOTENSION [None]
  - INTESTINAL DILATATION [None]
  - JOINT SWELLING [None]
  - METABOLIC ACIDOSIS [None]
  - MULTI-ORGAN DISORDER [None]
  - PLATELET COUNT DECREASED [None]
  - RENAL FAILURE ACUTE [None]
  - RHABDOMYOLYSIS [None]
  - SEPSIS [None]
  - SEPTIC SHOCK [None]
  - TACHYPNOEA [None]
  - WHITE BLOOD CELL COUNT DECREASED [None]
